FAERS Safety Report 6666862-2 (Version None)
Quarter: 2010Q2

REPORT INFORMATION
  Report Type: 
  Country: None (occurrence: None)
  Receive Date: 20100401
  Receipt Date: 20100401
  Transmission Date: 20101027
  Serious: No
  Sender: FDA-Public Use
  Company Number: None

PATIENT
  Age: 69 Year
  Sex: Male
  Weight: 130.32 kg

DRUGS (1)
  1. INSULIN [Suspect]
     Indication: DIABETES MELLITUS
     Dosage: 20 UNITS TID SQ
     Route: 058
     Dates: start: 20091102, end: 20100330

REACTIONS (3)
  - ABASIA [None]
  - ERYTHEMA MULTIFORME [None]
  - OEDEMA PERIPHERAL [None]
